FAERS Safety Report 23913165 (Version 1)
Quarter: 2024Q2

REPORT INFORMATION
  Report Type: Spontaneous
  Country: US (occurrence: US)
  Receive Date: 20240529
  Receipt Date: 20240529
  Transmission Date: 20240716
  Serious: No
  Sender: FDA-Public Use
  Company Number: US-ALK-ABELLO A/S-2024AA002071

PATIENT

DRUGS (3)
  1. CRANGON SHRIMP [Suspect]
     Active Substance: CRANGON SHRIMP
     Indication: Skin test
     Dosage: UNK
     Dates: start: 20231211
  2. MIXED SHELLFISH [Suspect]
     Active Substance: CRAB LEG, UNSPECIFIED\LOBSTER, UNSPECIFIED\OYSTER, UNSPECIFIED\SHRIMP, UNSPECIFIED
     Indication: Skin test
     Dosage: UNK
     Dates: start: 20231211
  3. OMEPRAZOLE [Concomitant]
     Active Substance: DONEPEZIL HYDROCHLORIDE\OMEPRAZOLE\OMEPRAZOLE MAGNESIUM
     Indication: Product used for unknown indication

REACTIONS (1)
  - False negative investigation result [Unknown]

NARRATIVE: CASE EVENT DATE: 20231211
